FAERS Safety Report 19020436 (Version 1)
Quarter: 2021Q1

REPORT INFORMATION
  Report Type: Spontaneous
  Country: CA (occurrence: CA)
  Receive Date: 20210317
  Receipt Date: 20210317
  Transmission Date: 20210420
  Serious: Yes (Other)
  Sender: FDA-Public Use
  Company Number: CA-JNJFOC-20210323588

PATIENT
  Age: 30 Year
  Sex: Female
  Weight: 61 kg

DRUGS (2)
  1. INFLIXIMAB, RECOMBINANT [Suspect]
     Active Substance: INFLIXIMAB
     Indication: CROHN^S DISEASE
     Route: 042
  2. INFLIXIMAB, RECOMBINANT [Suspect]
     Active Substance: INFLIXIMAB
     Indication: PSORIASIS
     Route: 042

REACTIONS (11)
  - Ocular hyperaemia [Unknown]
  - Erythema nodosum [Unknown]
  - Intentional product use issue [Unknown]
  - Eye swelling [Unknown]
  - Off label use [Unknown]
  - Uveitis [Unknown]
  - Condition aggravated [Unknown]
  - Product use issue [Unknown]
  - Vision blurred [Unknown]
  - Eye discharge [Unknown]
  - Eye infection [Unknown]
